FAERS Safety Report 23533992 (Version 1)
Quarter: 2024Q1

REPORT INFORMATION
  Report Type: Spontaneous
  Country: US (occurrence: US)
  Receive Date: 20240216
  Receipt Date: 20240216
  Transmission Date: 20240409
  Serious: Yes (Other)
  Sender: FDA-Public Use
  Company Number: US-FreseniusKabi-FK202402568

PATIENT
  Sex: Female

DRUGS (5)
  1. DEXAMETHASONE [Suspect]
     Active Substance: DEXAMETHASONE
     Indication: Product used for unknown indication
     Dosage: 5 MG/M2/DAY (245 MG/M2/DAY)
  2. MITOTANE [Suspect]
     Active Substance: MITOTANE
     Indication: Adrenal gland cancer
  3. ETOPOSIDE [Concomitant]
     Active Substance: ETOPOSIDE
     Indication: Adrenal gland cancer
  4. CISPLATIN [Concomitant]
     Active Substance: CISPLATIN
     Indication: Adrenal gland cancer
  5. DOXORUBICIN [Concomitant]
     Active Substance: DOXORUBICIN
     Indication: Adrenal gland cancer

REACTIONS (2)
  - Adrenocortical insufficiency acute [Unknown]
  - Drug interaction [Unknown]
